FAERS Safety Report 15741443 (Version 1)
Quarter: 2018Q4

REPORT INFORMATION
  Report Type: Report from Study
  Country: GB (occurrence: GB)
  Receive Date: 20181219
  Receipt Date: 20181219
  Transmission Date: 20190205
  Serious: Yes (Hospitalization, Other)
  Sender: FDA-Public Use
  Company Number: GB-JAZZ-2018-GB-008013

PATIENT
  Age: 50 Year
  Sex: Female
  Weight: 46 kg

DRUGS (5)
  1. DEFITELIO [Suspect]
     Active Substance: DEFIBROTIDE SODIUM
     Indication: VENOOCCLUSIVE DISEASE
     Dosage: 3.2 MG/KG, QD
     Dates: start: 20170328, end: 20170330
  2. DEFITELIO [Suspect]
     Active Substance: DEFIBROTIDE SODIUM
     Dosage: 3.2 MG/KG, QD
     Dates: start: 20180328, end: 20180330
  3. METHYLPREDNISOLONE. [Concomitant]
     Active Substance: METHYLPREDNISOLONE
     Dosage: 30 MG, QD
     Route: 042
     Dates: start: 20171025, end: 20171031
  4. METHYLPREDNISOLONE. [Concomitant]
     Active Substance: METHYLPREDNISOLONE
     Indication: GRAFT VERSUS HOST DISEASE
     Dosage: 60 MG, QD
     Route: 042
     Dates: start: 20171014, end: 20171016
  5. METHYLPREDNISOLONE. [Concomitant]
     Active Substance: METHYLPREDNISOLONE
     Dosage: 20 MG, QD
     Route: 042
     Dates: start: 20171101, end: 20171102

REACTIONS (4)
  - Lower respiratory tract infection fungal [Not Recovered/Not Resolved]
  - Respiratory failure [Unknown]
  - Bronchiectasis [Unknown]
  - Graft versus host disease in lung [Not Recovered/Not Resolved]

NARRATIVE: CASE EVENT DATE: 2017
